FAERS Safety Report 4740165-5 (Version None)
Quarter: 2005Q3

REPORT INFORMATION
  Report Type: 
  Country: None (occurrence: None)
  Receive Date: 20050809
  Receipt Date: 20050809
  Transmission Date: 20060218
  Serious: Yes (Other)
  Sender: FDA-Public Use
  Company Number: None

PATIENT
  Sex: Female

DRUGS (2)
  1. ARANESP [Suspect]
     Indication: ANAEMIA
     Dosage: 25MCG WEEKLY SUBCUTANEOUS
     Route: 058
     Dates: start: 20050614, end: 20050624
  2. ARANESP [Suspect]
     Indication: RENAL FAILURE CHRONIC
     Dosage: 25MCG WEEKLY SUBCUTANEOUS
     Route: 058
     Dates: start: 20050614, end: 20050624

REACTIONS (1)
  - MUSCLE SPASMS [None]
